FAERS Safety Report 7522606-3 (Version None)
Quarter: 2011Q2

REPORT INFORMATION
  Report Type: 
  Country: None (occurrence: None)
  Receive Date: 20110603
  Receipt Date: 20110530
  Transmission Date: 20111010
  Serious: Yes (Other)
  Sender: FDA-Public Use
  Company Number: JP-PFIZER INC-2011099286

PATIENT
  Age: 71 Year
  Sex: Male
  Weight: 70.6 kg

DRUGS (13)
  1. DIOVAN [Concomitant]
     Dosage: 160 MG, 1X/DAY
     Route: 048
     Dates: start: 20080111
  2. POLARAMINE [Concomitant]
     Indication: PROPHYLAXIS
     Dosage: 5 MG, ONE TIME DOSE ONLY
     Route: 042
     Dates: start: 20110329, end: 20110329
  3. POLARAMINE [Concomitant]
     Dosage: 5 MG, ONE TIME DOSE ONLY
     Dates: start: 20110405, end: 20110405
  4. LOCHOLEST [Concomitant]
     Dosage: 20 MG, 1X/DAY
     Route: 048
     Dates: start: 20040420
  5. ASPIRIN [Concomitant]
     Dosage: 100 MG, 1X/DAY
     Route: 048
     Dates: start: 20051227
  6. AMARYL [Concomitant]
     Dosage: 1 MG, 1X/DAY
     Route: 048
     Dates: start: 20110228
  7. TEMSIROLIMUS [Suspect]
     Indication: RENAL CELL CARCINOMA
     Dosage: 25 MG, WEEKLY
     Route: 042
     Dates: start: 20110329, end: 20110405
  8. RABEPRAZOLE SODIUM [Concomitant]
     Dosage: 10 MG, 1X/DAY
     Dates: start: 20040713
  9. PROSTAL [Concomitant]
     Dosage: 50 MG, 2X/DAY
     Route: 048
     Dates: start: 20110121
  10. FOIPAN [Concomitant]
     Dosage: 200 MG, 2X/DAY
     Route: 048
     Dates: start: 20040420
  11. AMLODIPINE [Concomitant]
     Dosage: 5 MG, 1X/DAY
     Route: 048
     Dates: start: 20070720
  12. SIGMART [Concomitant]
     Dosage: 5 MG, 3X/DAY
     Route: 048
     Dates: start: 20070323
  13. VOGLIBOSE [Concomitant]
     Dosage: 0.3 MG, 3X/DAY
     Route: 048
     Dates: start: 20110308

REACTIONS (2)
  - MUCOSAL INFLAMMATION [None]
  - PHARYNGEAL HAEMORRHAGE [None]
